FAERS Safety Report 9706659 (Version 3)
Quarter: 2014Q2

REPORT INFORMATION
  Report Type: Report from Study
  Country: US (occurrence: US)
  Receive Date: 20131125
  Receipt Date: 20140512
  Transmission Date: 20141212
  Serious: Yes (Hospitalization, Other)
  Sender: FDA-Public Use
  Company Number: US-ROCHE-1024283

PATIENT
  Sex: 0

DRUGS (3)
  1. RITUXIMAB [Suspect]
     Indication: CHRONIC LYMPHOCYTIC LEUKAEMIA
     Route: 042
  2. ALEMTUZUMAB [Suspect]
     Indication: CHRONIC LYMPHOCYTIC LEUKAEMIA
     Route: 042
  3. PENTOSTATIN [Suspect]
     Indication: CHRONIC LYMPHOCYTIC LEUKAEMIA
     Route: 042

REACTIONS (15)
  - Cytomegalovirus infection [Unknown]
  - Neutropenia [Unknown]
  - Infection [Unknown]
  - Thrombocytopenia [Unknown]
  - Anaemia [Unknown]
  - Haemolysis [Unknown]
  - Febrile neutropenia [Unknown]
  - Fatigue [Unknown]
  - Haemorrhage [Unknown]
  - Autoimmune haemolytic anaemia [Unknown]
  - Aplastic anaemia [Unknown]
  - Myalgia [Unknown]
  - Hypotension [Unknown]
  - Hyperuricaemia [Unknown]
  - Metastatic neoplasm [Unknown]
